FAERS Safety Report 15005243 (Version 1)
Quarter: 2018Q2

REPORT INFORMATION
  Report Type: Spontaneous
  Country: US (occurrence: US)
  Receive Date: 20180613
  Receipt Date: 20180613
  Transmission Date: 20180711
  Serious: No
  Sender: FDA-Public Use
  Company Number: US-TARO-2017TAR00660

PATIENT
  Age: 74 Year
  Sex: Female

DRUGS (2)
  1. NORTRIPTYLINE HCL CAPSULES 10 MG [Suspect]
     Active Substance: NORTRIPTYLINE HYDROCHLORIDE
  2. UNSPECIFIED MEDICATIONS [Suspect]
     Active Substance: UNSPECIFIED INGREDIENT

REACTIONS (2)
  - Arthritis [Not Recovered/Not Resolved]
  - Reaction to excipient [Not Recovered/Not Resolved]

NARRATIVE: CASE EVENT DATE: 201707
